FAERS Safety Report 8896245 (Version 1)
Quarter: 2012Q4

REPORT INFORMATION
  Report Type: Spontaneous
  Country: US (occurrence: None)
  Receive Date: 20121106
  Receipt Date: 20121106
  Transmission Date: 20130627
  Serious: No
  Sender: FDA-Public Use
  Company Number: None

PATIENT
  Age: 53 Year
  Sex: Female
  Weight: 59.42 kg

DRUGS (2)
  1. PROTONIX [Suspect]
     Indication: GERD
     Dosage: Daily
  2. ACIPHEX [Suspect]
     Dosage: Daily

REACTIONS (3)
  - Abdominal distension [None]
  - Chest pain [None]
  - Back pain [None]
